FAERS Safety Report 5365561-7 (Version None)
Quarter: 2007Q2

REPORT INFORMATION
  Report Type: 
  Country: None (occurrence: None)
  Receive Date: 20070621
  Receipt Date: 20070608
  Transmission Date: 20071010
  Serious: Yes (Hospitalization)
  Sender: FDA-Public Use
  Company Number: GB-AMGEN-US219707

PATIENT
  Sex: Female

DRUGS (5)
  1. ENBREL [Suspect]
     Indication: RHEUMATOID ARTHRITIS
     Route: 058
     Dates: start: 20051219, end: 20060730
  2. ENBREL [Suspect]
     Route: 058
     Dates: start: 20061201, end: 20070306
  3. CODEINE PHOSPHATE AND ACETAMINOPHEN [Concomitant]
     Indication: ANALGESIC EFFECT
     Dosage: AS REQUIRED
     Route: 048
  4. TRAMADOL HCL [Concomitant]
     Indication: ANALGESIC EFFECT
     Dosage: AS REQUIERED
     Route: 048
  5. METHOTREXATE [Concomitant]
     Indication: RHEUMATOID ARTHRITIS
     Dosage: 10 MG WEEKLY
     Route: 048
     Dates: start: 20061010

REACTIONS (1)
  - PERICARDIAL EFFUSION [None]
